FAERS Safety Report 8795784 (Version 2)
Quarter: 2014Q2

REPORT INFORMATION
  Report Type: Spontaneous
  Country: IT (occurrence: IT)
  Receive Date: 20120920
  Receipt Date: 20131017
  Transmission Date: 20141212
  Serious: Yes (Other)
  Sender: FDA-Public Use
  Company Number: IT-PFIZER INC-2012230770

PATIENT
  Age: 79 Year
  Sex: Female

DRUGS (6)
  1. VANCOMYCIN [Suspect]
     Indication: ANTIBIOTIC PROPHYLAXIS
     Dosage: 2 GRAMS, UNK
     Route: 065
     Dates: start: 20111004, end: 20111102
  2. MEROPENEM [Suspect]
     Indication: PYREXIA
     Dosage: 6 GRAMS, UNK
     Route: 065
     Dates: start: 20111023, end: 20111107
  3. ZOVIRAX [Suspect]
     Indication: ANTIVIRAL PROPHYLAXIS
     Dosage: 2 GRAMS, UNK
     Route: 065
     Dates: start: 20111004, end: 20111121
  4. BECOZYM [Suspect]
     Dosage: UNK
     Dates: start: 20111004
  5. FOLIC ACID [Suspect]
     Indication: ANAEMIA
     Dosage: 5 MG, UNK
     Route: 048
     Dates: start: 20111004, end: 20111026
  6. MYCAMINE [Suspect]
     Dosage: UNK
     Dates: start: 20111004

REACTIONS (2)
  - Angioedema [Recovering/Resolving]
  - Rash [Recovering/Resolving]
